FAERS Safety Report 11810494 (Version 2)
Quarter: 2015Q4

REPORT INFORMATION
  Report Type: Spontaneous
  Country: JP (occurrence: JP)
  Receive Date: 20151208
  Receipt Date: 20151221
  Transmission Date: 20160305
  Serious: Yes (Hospitalization)
  Sender: FDA-Public Use
  Company Number: JP-PFIZER INC-2015424463

PATIENT
  Age: 36 Year
  Sex: Female
  Weight: 87.2 kg

DRUGS (2)
  1. PROVERA [Suspect]
     Active Substance: MEDROXYPROGESTERONE ACETATE
     Indication: MENSTRUATION IRREGULAR
     Dosage: 2.5 MG, 1X/DAY CYCLE OF 28 DAYS
     Route: 048
     Dates: start: 20151127, end: 20151130
  2. PREMARIN [Suspect]
     Active Substance: ESTROGENS, CONJUGATED
     Indication: MENSTRUATION IRREGULAR
     Dosage: 0.625 MG, 1X/DAY CYCLE OF 28 DAYS
     Route: 048
     Dates: start: 20151107, end: 20151130

REACTIONS (1)
  - Fracture [Recovering/Resolving]
